FAERS Safety Report 12269740 (Version 3)
Quarter: 2016Q3

REPORT INFORMATION
  Report Type: Report from Study
  Country: US (occurrence: US)
  Receive Date: 20160414
  Receipt Date: 20160829
  Transmission Date: 20161109
  Serious: Yes (Hospitalization, Other)
  Sender: FDA-Public Use
  Company Number: US-GILEAD-2016-0208746

PATIENT
  Age: 66 Year
  Sex: Female
  Weight: 93 kg

DRUGS (17)
  1. BUMETANIDE. [Concomitant]
     Active Substance: BUMETANIDE
  2. LEVETIRACETAM. [Concomitant]
     Active Substance: LEVETIRACETAM
  3. PRAVASTATIN. [Concomitant]
     Active Substance: PRAVASTATIN
  4. PREDNISONE. [Concomitant]
     Active Substance: PREDNISONE
  5. SILDENAFIL. [Concomitant]
     Active Substance: SILDENAFIL
  6. AMLODIPINE [Concomitant]
     Active Substance: AMLODIPINE BESYLATE
  7. APIXABAN [Concomitant]
     Active Substance: APIXABAN
  8. CALCIUM CARBONATE W/MAGNESIUM CHLORIDE [Concomitant]
  9. INSULIN GLARGINE [Concomitant]
     Active Substance: INSULIN GLARGINE
  10. PANTOPRAZOLE [Concomitant]
     Active Substance: PANTOPRAZOLE SODIUM
  11. TACROLIMUS. [Concomitant]
     Active Substance: TACROLIMUS
  12. OMEGA-3 FATTY ACIDS [Concomitant]
     Active Substance: OMEGA-3 FATTY ACIDS
  13. AMBRISENTAN [Suspect]
     Active Substance: AMBRISENTAN
     Indication: PRODUCT USED FOR UNKNOWN INDICATION
     Dosage: 10 MG, QD
     Route: 048
     Dates: start: 20131119
  14. POTASSIUM CHLORIDE. [Concomitant]
     Active Substance: POTASSIUM CHLORIDE
  15. FERROUS SULFATE. [Concomitant]
     Active Substance: FERROUS SULFATE
  16. MYCOPHENOLATE [Concomitant]
     Active Substance: MYCOPHENOLIC ACID
  17. INSULIN ASPART [Concomitant]
     Active Substance: INSULIN ASPART

REACTIONS (3)
  - Thrombosis [Recovered/Resolved]
  - Seizure [Unknown]
  - Thrombosis [Unknown]

NARRATIVE: CASE EVENT DATE: 20160324
